FAERS Safety Report 13999158 (Version 1)
Quarter: 2017Q3

REPORT INFORMATION
  Report Type: Spontaneous
  Country: IT (occurrence: IT)
  Receive Date: 20170922
  Receipt Date: 20170922
  Transmission Date: 20171128
  Serious: Yes (Other)
  Sender: FDA-Public Use
  Company Number: IT-TEVA-807974ACC

PATIENT
  Age: 52 Year
  Sex: Male

DRUGS (4)
  1. LAMIVUDINA MYLAN - 300 MG COMPRESSE RIVESTITE CON FILM [Concomitant]
     Indication: HIV INFECTION
     Dosage: 300 MG
     Route: 048
  2. RIBAVIRIN. [Suspect]
     Active Substance: RIBAVIRIN
     Indication: CHRONIC HEPATITIS C
     Route: 048
     Dates: start: 20150302, end: 20150810
  3. SOVALDI [Suspect]
     Active Substance: SOFOSBUVIR
     Indication: CHRONIC HEPATITIS C
     Dosage: 400 MILLIGRAM DAILY;
     Route: 048
     Dates: start: 20150302, end: 20150810
  4. TIVICAY - 50 MG COMPRESSA RIVESTITA CON FILM [Concomitant]
     Indication: HIV INFECTION
     Dosage: 50 MG
     Route: 048

REACTIONS (1)
  - Virologic failure [Unknown]

NARRATIVE: CASE EVENT DATE: 20150817
